FAERS Safety Report 5066337-0 (Version None)
Quarter: 2006Q3

REPORT INFORMATION
  Report Type: 
  Country: None (occurrence: None)
  Receive Date: 20060719
  Receipt Date: 20060119
  Transmission Date: 20061208
  Serious: No
  Sender: FDA-Public Use
  Company Number: 06P-163-0322998-00

PATIENT
  Age: 60 Year
  Sex: Female
  Weight: 87 kg

DRUGS (13)
  1. RITONAVIR SOFT GELATIN CAPSULES (NORVIR) (RITONAVIR) [Suspect]
     Indication: HIV INFECTION
     Dosage: 100 MG, 2 IN 1 D, ORAL
     Route: 048
     Dates: start: 20040406
  2. SCH 417690 [Suspect]
     Indication: HIV INFECTION
     Dosage: 15 MG, 1 IN 1 D, ORAL
     Route: 048
     Dates: start: 20050912
  3. TENOFOVIR [Concomitant]
  4. FOSAMPRENAVIR [Concomitant]
  5. FUZEON [Concomitant]
  6. METOCLOPRAMIDE GLYCYRRHETINATE [Concomitant]
  7. ASPIRIN [Concomitant]
  8. FLUVASTATIN SODIUM [Concomitant]
  9. ENALAPRIL [Concomitant]
  10. METOPROLOL SUCCINATE [Concomitant]
  11. FAMOTIDINE [Concomitant]
  12. NAPROXEN SODIUM [Concomitant]
  13. METFORMIN HCL [Concomitant]

REACTIONS (1)
  - BLOOD GLUCOSE INCREASED [None]
